FAERS Safety Report 12876759 (Version 1)
Quarter: 2016Q4

REPORT INFORMATION
  Report Type: Spontaneous
  Country: US (occurrence: US)
  Receive Date: 20161024
  Receipt Date: 20161024
  Transmission Date: 20170207
  Serious: Yes (Hospitalization)
  Sender: FDA-Public Use
  Company Number: US-JNJFOC-20161019448

PATIENT
  Sex: Male

DRUGS (17)
  1. ACYCLOVIR. [Concomitant]
     Active Substance: ACYCLOVIR
  2. SYMBICORT [Concomitant]
     Active Substance: BUDESONIDE\FORMOTEROL FUMARATE DIHYDRATE
  3. SPIRIVA [Concomitant]
     Active Substance: TIOTROPIUM BROMIDE MONOHYDRATE
  4. IMBRUVICA [Suspect]
     Active Substance: IBRUTINIB
     Indication: PRODUCT USED FOR UNKNOWN INDICATION
     Route: 048
     Dates: start: 20160210
  5. FLONASE [Concomitant]
     Active Substance: FLUTICASONE PROPIONATE
  6. VIAGRA [Concomitant]
     Active Substance: SILDENAFIL CITRATE
  7. ZOLOFT [Concomitant]
     Active Substance: SERTRALINE HYDROCHLORIDE
  8. LASIX [Concomitant]
     Active Substance: FUROSEMIDE
  9. DESONIDE. [Concomitant]
     Active Substance: DESONIDE
  10. ATIVAN [Concomitant]
     Active Substance: LORAZEPAM
  11. TYLENOL [Concomitant]
     Active Substance: ACETAMINOPHEN
  12. PRILOSEC [Concomitant]
     Active Substance: OMEPRAZOLE MAGNESIUM
  13. POTASSIUM [Concomitant]
     Active Substance: POTASSIUM
  14. VENTOLIN [Concomitant]
     Active Substance: ALBUTEROL SULFATE
  15. MIRALAX [Concomitant]
     Active Substance: POLYETHYLENE GLYCOL 3350
  16. LISINOPRIL. [Concomitant]
     Active Substance: LISINOPRIL
  17. ALEVE [Concomitant]
     Active Substance: NAPROXEN SODIUM

REACTIONS (1)
  - Hospitalisation [Unknown]
